FAERS Safety Report 14922033 (Version 1)
Quarter: 2018Q2

REPORT INFORMATION
  Report Type: Spontaneous
  Country: US (occurrence: US)
  Receive Date: 20180522
  Receipt Date: 20180522
  Transmission Date: 20180711
  Serious: Yes (Hospitalization)
  Sender: FDA-Public Use
  Company Number: US-STRIDES ARCOLAB LIMITED-2018SP003803

PATIENT

DRUGS (8)
  1. VANCOMYCIN [Suspect]
     Active Substance: VANCOMYCIN
     Indication: SEPSIS
     Dosage: 1 G, UNK
     Route: 042
  2. LINEZOLID. [Suspect]
     Active Substance: LINEZOLID
     Dosage: 600 MG, EVERY 12 HRS
     Route: 042
  3. DAPTOMYCIN. [Suspect]
     Active Substance: DAPTOMYCIN
     Indication: LIVER ABSCESS
     Dosage: 350 MG, QD, OVER THE FIRST 51 DAYS OF HOSPITALIZATION
     Route: 042
  4. LINEZOLID. [Suspect]
     Active Substance: LINEZOLID
     Indication: SEPSIS
     Dosage: 600 MG, EVERY 12 HRS
     Route: 048
  5. DAPTOMYCIN. [Suspect]
     Active Substance: DAPTOMYCIN
     Indication: SEPSIS
     Dosage: 300 MG, QD,
     Route: 042
  6. LINEZOLID. [Suspect]
     Active Substance: LINEZOLID
     Indication: LIVER ABSCESS
     Dosage: 600 MG, EVERY 12 HRS, OVER THE FIRST 51 DAYS OF HOSPITALIZATION
     Route: 042
  7. VANCOMYCIN [Suspect]
     Active Substance: VANCOMYCIN
     Indication: LIVER ABSCESS
     Dosage: 1 G, EVERY 12 HRS, OVER THE FIRST 51 DAYS OF HOSPITALIZATION
     Route: 042
  8. AMPICILLIN AND SULBACTAM [Concomitant]
     Active Substance: AMPICILLIN SODIUM\SULBACTAM SODIUM
     Indication: PRODUCT USED FOR UNKNOWN INDICATION
     Dosage: UNK
     Route: 065

REACTIONS (2)
  - Treatment failure [Unknown]
  - Drug resistance [Recovered/Resolved]
